FAERS Safety Report 15938429 (Version 1)
Quarter: 2019Q1

REPORT INFORMATION
  Report Type: Spontaneous
  Country: US (occurrence: US)
  Receive Date: 20190208
  Receipt Date: 20190208
  Transmission Date: 20190417
  Serious: No
  Sender: FDA-Public Use
  Company Number: US-ROCHE-2214788

PATIENT
  Sex: Female

DRUGS (1)
  1. XOLAIR [Suspect]
     Active Substance: OMALIZUMAB
     Indication: URTICARIA CHOLINERGIC
     Route: 058
     Dates: start: 20181030

REACTIONS (4)
  - Incorrect dose administered [Unknown]
  - Intentional product use issue [Unknown]
  - No adverse event [Unknown]
  - Off label use [Unknown]
